FAERS Safety Report 8233005-3 (Version None)
Quarter: 2012Q1

REPORT INFORMATION
  Report Type: 
  Country: None (occurrence: None)
  Receive Date: 20120326
  Receipt Date: 20120315
  Transmission Date: 20120608
  Serious: Yes (Other)
  Sender: FDA-Public Use
  Company Number: US-BIOGENIDEC-2012BI004574

PATIENT
  Age: 64 Year
  Sex: Male

DRUGS (1)
  1. TYSABRI [Suspect]
     Indication: MULTIPLE SCLEROSIS
     Route: 042
     Dates: start: 20070411

REACTIONS (5)
  - OSTEOMYELITIS [None]
  - STAPHYLOCOCCAL INFECTION [None]
  - INTERVERTEBRAL DISCITIS [None]
  - PAIN [None]
  - MULTIPLE SCLEROSIS [None]
